FAERS Safety Report 7803460-9 (Version None)
Quarter: 2011Q4

REPORT INFORMATION
  Report Type: 
  Country: None (occurrence: None)
  Receive Date: 20111007
  Receipt Date: 20110928
  Transmission Date: 20120403
  Serious: Yes (Life-Threatening, Hospitalization)
  Sender: FDA-Public Use
  Company Number: FR-MERCK-1109USA03433

PATIENT
  Age: 67 Year
  Sex: Male

DRUGS (10)
  1. IDARUBICIN HCL [Suspect]
     Indication: ACUTE MYELOID LEUKAEMIA
     Route: 042
     Dates: start: 20110729, end: 20110803
  2. PRIMAXIN [Suspect]
     Indication: PYREXIA
     Route: 042
     Dates: start: 20110804, end: 20110816
  3. VANCOMYCIN [Suspect]
     Indication: PYREXIA
     Route: 042
     Dates: start: 20110729, end: 20110812
  4. ZOVIRAX [Concomitant]
     Indication: PROPHYLAXIS
     Route: 065
     Dates: start: 20110804
  5. OFLOXACIN [Suspect]
     Route: 042
     Dates: start: 20110731, end: 20110812
  6. AMBISOME [Suspect]
     Route: 042
     Dates: start: 20110802, end: 20110812
  7. BELUSTINE [Concomitant]
     Indication: ACUTE MYELOID LEUKAEMIA
     Route: 065
     Dates: start: 20110729, end: 20110729
  8. CYTARABINE [Suspect]
     Indication: ACUTE MYELOID LEUKAEMIA
     Route: 042
     Dates: start: 20110729, end: 20110805
  9. AMIKACIN [Suspect]
     Indication: PYREXIA
     Route: 042
     Dates: start: 20110804, end: 20110806
  10. CEFTAZIDIME SODIUM [Concomitant]
     Indication: PYREXIA
     Route: 065
     Dates: start: 20110729, end: 20110804

REACTIONS (1)
  - DRUG RASH WITH EOSINOPHILIA AND SYSTEMIC SYMPTOMS [None]
